FAERS Safety Report 6054769-3 (Version None)
Quarter: 2009Q1

REPORT INFORMATION
  Report Type: 
  Country: None (occurrence: None)
  Receive Date: 20090128
  Receipt Date: 20090116
  Transmission Date: 20090719
  Serious: Yes (Hospitalization)
  Sender: FDA-Public Use
  Company Number: ES-PFIZER INC-2006081312

PATIENT

DRUGS (4)
  1. SUNITINIB MALATE [Suspect]
     Indication: RENAL CELL CARCINOMA
     Route: 048
     Dates: start: 20060531, end: 20060626
  2. TENORMIN [Concomitant]
     Route: 048
     Dates: start: 20031106
  3. TROMALYT [Concomitant]
     Route: 048
     Dates: start: 20031106
  4. ZOCOR [Concomitant]
     Route: 048

REACTIONS (1)
  - GAIT DISTURBANCE [None]
